FAERS Safety Report 6289397-8 (Version None)
Quarter: 2009Q3

REPORT INFORMATION
  Report Type: 
  Country: None (occurrence: None)
  Receive Date: 20090730
  Receipt Date: 20090723
  Transmission Date: 20100115
  Serious: Yes (Hospitalization, Other)
  Sender: FDA-Public Use
  Company Number: US-ELI_LILLY_AND_COMPANY-US200907005219

PATIENT
  Sex: Male

DRUGS (3)
  1. HUMALOG [Suspect]
     Dosage: UNK, UNK
     Dates: start: 20080101
  2. LANTUS [Concomitant]
     Dosage: 20 U, UNK
  3. LANTUS [Concomitant]
     Dosage: 22 U, UNK

REACTIONS (12)
  - BLOOD GLUCOSE INCREASED [None]
  - CARDIAC PACEMAKER INSERTION [None]
  - DYSPNOEA EXERTIONAL [None]
  - FEELING ABNORMAL [None]
  - FLUID RETENTION [None]
  - HYPERVENTILATION [None]
  - INTENTIONAL DRUG MISUSE [None]
  - MALAISE [None]
  - NOCTURNAL DYSPNOEA [None]
  - POOR QUALITY DRUG ADMINISTERED [None]
  - RENAL FAILURE [None]
  - RENAL PAIN [None]
